FAERS Safety Report 9640450 (Version 1)
Quarter: 2013Q4

REPORT INFORMATION
  Report Type: Spontaneous
  Country: US (occurrence: None)
  Receive Date: 20131022
  Receipt Date: 20131022
  Transmission Date: 20140711
  Serious: Yes (Life-Threatening, Hospitalization)
  Sender: FDA-Public Use
  Company Number: None

PATIENT
  Age: 64 Year
  Sex: Female
  Weight: 102.06 kg

DRUGS (12)
  1. SULFAMETHOXAZOLE/TMP DS [Suspect]
     Indication: ARTHRITIS INFECTIVE
     Dosage: 14 PILLS         TWICE DAILY  BY MOUTH
     Route: 048
     Dates: start: 20100419, end: 20100426
  2. SIMVISTATIN [Concomitant]
  3. GABAPENTIN [Concomitant]
  4. LISINOPRIL [Concomitant]
  5. METOPROLOL [Concomitant]
  6. GLIMIPERIDE [Concomitant]
  7. ALLOPURINOL [Concomitant]
  8. PANTOPRAZOLE [Concomitant]
  9. IPRATOPIUM BROMIDE [Concomitant]
  10. C-PAP WITH OXYGEN [Concomitant]
  11. MULTI-VITAMIN [Concomitant]
  12. FISH OIL [Concomitant]

REACTIONS (3)
  - Stevens-Johnson syndrome [None]
  - Toxic epidermal necrolysis [None]
  - Dysphonia [None]
